FAERS Safety Report 16175251 (Version 1)
Quarter: 2019Q2

REPORT INFORMATION
  Report Type: Spontaneous
  Country: US (occurrence: US)
  Receive Date: 20190402
  Receipt Date: 20190402
  Transmission Date: 20190711
  Serious: Yes (Other)
  Sender: FDA-Public Use
  Company Number: US-ASTRAZENECA-2019SE49258

PATIENT
  Age: 26313 Day
  Sex: Female

DRUGS (2)
  1. CRESTOR [Suspect]
     Active Substance: ROSUVASTATIN CALCIUM
     Route: 048
  2. LIPITOR [Suspect]
     Active Substance: ATORVASTATIN CALCIUM
     Route: 065

REACTIONS (7)
  - Blood glucose increased [Unknown]
  - Neoplasm malignant [Unknown]
  - Drug ineffective [Unknown]
  - Myocardial infarction [Unknown]
  - Diabetes mellitus [Unknown]
  - Blood cholesterol increased [Unknown]
  - Malaise [Unknown]

NARRATIVE: CASE EVENT DATE: 20190313
